FAERS Safety Report 18359853 (Version 3)
Quarter: 2020Q4

REPORT INFORMATION
  Report Type: Spontaneous
  Country: GB (occurrence: GB)
  Receive Date: 20201008
  Receipt Date: 20201021
  Transmission Date: 20210114
  Serious: Yes (Life-Threatening, Hospitalization, Other)
  Sender: FDA-Public Use
  Company Number: GB-PFIZER INC-2020386221

PATIENT
  Age: 29 Year
  Sex: Male

DRUGS (14)
  1. BRIVARACETAM [Concomitant]
     Active Substance: BRIVARACETAM
     Indication: TEMPORAL LOBE EPILEPSY
     Dosage: 100 MG, 2X/DAY
  2. BRIVARACETAM [Concomitant]
     Active Substance: BRIVARACETAM
     Indication: PARTIAL SEIZURES
  3. CLOBAZAM. [Suspect]
     Active Substance: CLOBAZAM
     Indication: PARTIAL SEIZURES
     Dosage: 30 MG, DAILY (10 MG IN AM, 20 MG IN PM)
     Route: 048
     Dates: start: 20200823, end: 20200823
  4. CLOBAZAM. [Suspect]
     Active Substance: CLOBAZAM
     Indication: TEMPORAL LOBE EPILEPSY
     Dosage: UNK
  5. FYCOMPA [Suspect]
     Active Substance: PERAMPANEL
     Dosage: UNK
     Route: 048
     Dates: start: 20200823, end: 20200823
  6. ESLICARBAZEPINE ACETATE [Concomitant]
     Active Substance: ESLICARBAZEPINE ACETATE
     Indication: TEMPORAL LOBE EPILEPSY
     Dosage: 1200 MG, DAILY (400 MG IN AM, 800 MG IN PM)
  7. FYCOMPA [Suspect]
     Active Substance: PERAMPANEL
     Dosage: 6 MG, 1X/DAY
     Dates: start: 202007, end: 20200822
  8. METHYLPREDNISOLONE. [Suspect]
     Active Substance: METHYLPREDNISOLONE
     Indication: AUTOIMMUNE DISORDER
     Dosage: 500 MG, 1X/DAY
     Route: 048
     Dates: start: 20200821, end: 202008
  9. FYCOMPA [Suspect]
     Active Substance: PERAMPANEL
     Indication: TEMPORAL LOBE EPILEPSY
     Dosage: 6 MG, 1X/DAY
     Route: 048
     Dates: start: 20200128, end: 20200823
  10. FYCOMPA [Suspect]
     Active Substance: PERAMPANEL
     Indication: PARTIAL SEIZURES
     Dosage: 4 MG, 1X/DAY
     Route: 048
     Dates: start: 202005, end: 202006
  11. PREDNISOLONE. [Concomitant]
     Active Substance: PREDNISOLONE
  12. FYCOMPA [Suspect]
     Active Substance: PERAMPANEL
     Indication: EPILEPSY
     Dosage: 2 MG, DAILY
     Route: 048
     Dates: start: 202001, end: 202005
  13. FYCOMPA [Suspect]
     Active Substance: PERAMPANEL
     Dosage: 8 MG, DAILY
     Route: 048
     Dates: start: 202006, end: 202007
  14. ESLICARBAZEPINE ACETATE [Concomitant]
     Active Substance: ESLICARBAZEPINE ACETATE
     Indication: PARTIAL SEIZURES

REACTIONS (9)
  - Suicidal ideation [Recovered/Resolved]
  - Psychotic disorder [Recovering/Resolving]
  - Abnormal behaviour [Recovering/Resolving]
  - Somnolence [Recovering/Resolving]
  - Anger [Recovering/Resolving]
  - Psychotic disorder [Recovered/Resolved]
  - Intentional overdose [Recovered/Resolved with Sequelae]
  - Suicide attempt [Recovered/Resolved]
  - Hallucination, auditory [Recovering/Resolving]

NARRATIVE: CASE EVENT DATE: 202005
